FAERS Safety Report 6723653-1 (Version None)
Quarter: 2010Q2

REPORT INFORMATION
  Report Type: 
  Country: None (occurrence: None)
  Receive Date: 20100511
  Receipt Date: 20091209
  Transmission Date: 20101027
  Serious: Yes (Life-Threatening)
  Sender: FDA-Public Use
  Company Number: LEO -2010-00331

PATIENT
  Age: 86 Year
  Sex: Female
  Weight: 63 kg

DRUGS (10)
  1. INNOHEP [Suspect]
     Indication: THROMBOSIS PROPHYLAXIS
     Dosage: 3500 IU, SUBCUTANEOUS
     Route: 058
     Dates: start: 20080501, end: 20080618
  2. HEPARIN [Suspect]
     Dosage: INTRAVENOUS
     Route: 042
     Dates: start: 20080618
  3. CALCIPARINE [Suspect]
     Dosage: 1.5 ML (0.5 ML, 3 IN 1 D), SUBCUTANEOUS
     Route: 058
     Dates: start: 20080619
  4. ASPIRIN [Concomitant]
  5. COZAAR [Concomitant]
  6. INDAPAMIDE [Concomitant]
  7. STAGID (METFORMIN EMBONATE) [Concomitant]
  8. SMECTA (SMECTITE) [Concomitant]
  9. TRIFLUCLAN (FLUCONAZOLE) [Concomitant]
  10. ACETAMINOPHEN [Concomitant]

REACTIONS (3)
  - CEREBROVASCULAR ACCIDENT [None]
  - DISEASE RECURRENCE [None]
  - OFF LABEL USE [None]
